FAERS Safety Report 9547806 (Version 1)
Quarter: 2013Q3

REPORT INFORMATION
  Report Type: Spontaneous
  Country: US (occurrence: US)
  Receive Date: 20130924
  Receipt Date: 20130924
  Transmission Date: 20140515
  Serious: No
  Sender: FDA-Public Use
  Company Number: US-PURDUE-USA-2011-0075717

PATIENT
  Age: 48 Year
  Sex: Female

DRUGS (4)
  1. MORPHINE SULFATE (SIMILAR TO NDA 19-516) [Suspect]
     Indication: OSTEOARTHRITIS
  2. MORPHINE SULFATE (SIMILAR TO NDA 19-516) [Suspect]
     Indication: PELVIC INFLAMMATORY DISEASE
  3. MORPHINE SULFATE (SIMILAR TO NDA 19-516) [Suspect]
     Indication: NERVE INJURY
  4. MORPHINE SULFATE (SIMILAR TO NDA 19-516) [Suspect]
     Indication: PAIN

REACTIONS (4)
  - Pain in extremity [Unknown]
  - Influenza like illness [Unknown]
  - Activities of daily living impaired [Unknown]
  - Drug ineffective [Unknown]
